FAERS Safety Report 18346068 (Version 1)
Quarter: 2020Q4

REPORT INFORMATION
  Report Type: Spontaneous
  Country: US (occurrence: US)
  Receive Date: 20201005
  Receipt Date: 20201005
  Transmission Date: 20210114
  Serious: Yes (Other)
  Sender: FDA-Public Use
  Company Number: US-ABBVIE-20K-163-3587823-00

PATIENT
  Age: 53 Year
  Sex: Male

DRUGS (15)
  1. TENOFOVIR [Concomitant]
     Active Substance: TENOFOVIR
     Indication: HIV INFECTION
     Dates: start: 2005, end: 2012
  2. ABACAVIR. [Concomitant]
     Active Substance: ABACAVIR
     Dates: start: 2005, end: 2012
  3. ABACAVIR. [Concomitant]
     Active Substance: ABACAVIR
     Indication: HIV INFECTION
     Dates: start: 2015, end: 2017
  4. DOLUTEGRAVIR [Concomitant]
     Active Substance: DOLUTEGRAVIR
     Dates: start: 2005, end: 2012
  5. LAMIVUDINE. [Concomitant]
     Active Substance: LAMIVUDINE
     Dates: start: 2005, end: 2012
  6. RITONAVIR. [Suspect]
     Active Substance: RITONAVIR
     Indication: HIV INFECTION
     Route: 048
  7. TENOFOVIR [Concomitant]
     Active Substance: TENOFOVIR
     Dates: start: 2012, end: 2015
  8. RILPIVIRINE [Concomitant]
     Active Substance: RILPIVIRINE
     Dates: start: 2005, end: 2012
  9. ZIDOVUDINE. [Concomitant]
     Active Substance: ZIDOVUDINE
     Indication: HIV INFECTION
     Dates: start: 2005, end: 2012
  10. RILPIVIRINE [Concomitant]
     Active Substance: RILPIVIRINE
     Indication: HIV INFECTION
     Dates: start: 2012, end: 2015
  11. LAMIVUDINE. [Concomitant]
     Active Substance: LAMIVUDINE
     Indication: HIV INFECTION
     Dates: start: 2015, end: 2017
  12. EMTRICITABINE [Concomitant]
     Active Substance: EMTRICITABINE
     Indication: HIV INFECTION
     Dates: start: 2005, end: 2012
  13. EMTRICITABINE [Concomitant]
     Active Substance: EMTRICITABINE
     Dates: start: 2012, end: 2015
  14. DOLUTEGRAVIR [Concomitant]
     Active Substance: DOLUTEGRAVIR
     Indication: HIV INFECTION
     Dates: start: 2015, end: 2017
  15. ZIDOVUDINE. [Concomitant]
     Active Substance: ZIDOVUDINE
     Dates: start: 2005, end: 2012

REACTIONS (1)
  - Retinal toxicity [Unknown]
